FAERS Safety Report 12754962 (Version 1)
Quarter: 2016Q3

REPORT INFORMATION
  Report Type: Spontaneous
  Country: US (occurrence: US)
  Receive Date: 20160916
  Receipt Date: 20160916
  Transmission Date: 20161109
  Serious: Yes (Death)
  Sender: FDA-Public Use
  Company Number: US-FOOD AND DRUG ADMINISTRATION-INS201609-000487

PATIENT
  Sex: Male

DRUGS (1)
  1. SUBSYS [Suspect]
     Active Substance: FENTANYL
     Indication: BREAKTHROUGH PAIN
     Route: 060
     Dates: start: 20160714

REACTIONS (3)
  - Neoplasm progression [Fatal]
  - Malignant neoplasm progression [None]
  - Neoplasm malignant [None]
